FAERS Safety Report 18326684 (Version 1)
Quarter: 2020Q3

REPORT INFORMATION
  Report Type: Spontaneous
  Country: US (occurrence: US)
  Receive Date: 20200930
  Receipt Date: 20200930
  Transmission Date: 20201103
  Serious: Yes (Other)
  Sender: FDA-Public Use
  Company Number: US-AUROBINDO-AUR-APL-2013-03753

PATIENT
  Age: 21 Year
  Sex: Male

DRUGS (1)
  1. MINOCYCLINE [Suspect]
     Active Substance: MINOCYCLINE HYDROCHLORIDE
     Indication: ACNE
     Dosage: 100 MG,TWO TIMES A DAY,
     Route: 065

REACTIONS (18)
  - Lymphadenopathy [Recovered/Resolved]
  - Anti-neutrophil cytoplasmic antibody positive vasculitis [Recovered/Resolved]
  - Myalgia [Recovered/Resolved]
  - Joint swelling [Recovered/Resolved]
  - Diarrhoea [Recovered/Resolved]
  - Arthralgia [Recovered/Resolved]
  - Livedo reticularis [Recovered/Resolved]
  - Aneurysm [Recovered/Resolved]
  - Testicular pain [Recovered/Resolved]
  - Musculoskeletal stiffness [Recovered/Resolved]
  - Weight decreased [Recovered/Resolved]
  - Nipple pain [Recovered/Resolved]
  - Varicocele [Recovered/Resolved]
  - C-reactive protein increased [Recovered/Resolved]
  - Arthritis [Recovered/Resolved]
  - Testicular infarction [Recovered/Resolved]
  - Red blood cell sedimentation rate increased [Recovered/Resolved]
  - Fatigue [Recovered/Resolved]

NARRATIVE: CASE EVENT DATE: 201101
